FAERS Safety Report 5730957-8 (Version None)
Quarter: 2008Q2

REPORT INFORMATION
  Report Type: 
  Country: None (occurrence: None)
  Receive Date: 20080430
  Receipt Date: 20071219
  Transmission Date: 20081010
  Serious: No
  Sender: FDA-Public Use
  Company Number: 2007PV033866

PATIENT
  Sex: Male

DRUGS (2)
  1. SYMLIN [Suspect]
     Indication: TYPE 1 DIABETES MELLITUS
     Dosage: 18 MCG;TID;SC
     Route: 058
     Dates: start: 20070901
  2. INSULIN DETEMIR [Concomitant]

REACTIONS (1)
  - SOMNOLENCE [None]
